FAERS Safety Report 14079692 (Version 1)
Quarter: 2017Q4

REPORT INFORMATION
  Report Type: Spontaneous
  Country: GB (occurrence: GB)
  Receive Date: 20171012
  Receipt Date: 20171012
  Transmission Date: 20180321
  Serious: Yes (Other)
  Sender: FDA-Public Use
  Company Number: GB-BAYER-2017-195727

PATIENT

DRUGS (1)
  1. CIPROFLOXACIN. [Suspect]
     Active Substance: CIPROFLOXACIN
     Dosage: UNK
     Route: 042

REACTIONS (7)
  - Pyrexia [None]
  - Tachycardia [None]
  - Muscle spasms [None]
  - Diarrhoea [None]
  - Vomiting [None]
  - Coccydynia [None]
  - Hypoxia [None]
